FAERS Safety Report 4877086-3 (Version None)
Quarter: 2005Q4

REPORT INFORMATION
  Report Type: 
  Country: None (occurrence: None)
  Receive Date: 20051206
  Receipt Date: 20050822
  Transmission Date: 20060501
  Serious: No
  Sender: FDA-Public Use
  Company Number: USA0508106083

PATIENT
  Age: 32 Year
  Sex: Male
  Weight: 98 kg

DRUGS (3)
  1. CYMBALTA [Suspect]
     Indication: DEPRESSION
     Dosage: 30 MG/DAILY IN THE MORNING
     Dates: start: 20050601
  2. XANAX [Concomitant]
  3. ZOLOFT [Concomitant]

REACTIONS (4)
  - DYSGEUSIA [None]
  - DYSPNOEA [None]
  - ERUCTATION [None]
  - FEELING ABNORMAL [None]
